FAERS Safety Report 9702042 (Version 1)
Quarter: 2013Q4

REPORT INFORMATION
  Report Type: Spontaneous
  Country: RS (occurrence: RS)
  Receive Date: 20131121
  Receipt Date: 20131121
  Transmission Date: 20140711
  Serious: Yes (Other)
  Sender: FDA-Public Use
  Company Number: RS-ABBVIE-13P-303-1169307-00

PATIENT
  Age: 2 Month
  Sex: 0

DRUGS (6)
  1. VALPROATE SODIUM [Suspect]
     Indication: PRODUCT USED FOR UNKNOWN INDICATION
  2. CLONAZEPAM [Suspect]
     Indication: PRODUCT USED FOR UNKNOWN INDICATION
  3. CARBAMAZEPINE [Suspect]
     Indication: PRODUCT USED FOR UNKNOWN INDICATION
  4. MIDAZOLAM [Suspect]
     Route: 042
  5. MIDAZOLAM [Suspect]
  6. PHENOBARBITAL [Suspect]
     Route: 042

REACTIONS (1)
  - Status epilepticus [Unknown]
